FAERS Safety Report 9464937 (Version 1)
Quarter: 2013Q3

REPORT INFORMATION
  Report Type: Report from Study
  Country: VE (occurrence: VE)
  Receive Date: 20130819
  Receipt Date: 20130819
  Transmission Date: 20140515
  Serious: Yes (Other)
  Sender: FDA-Public Use
  Company Number: PHHY2013VE088769

PATIENT
  Age: 48 Year
  Sex: Female

DRUGS (2)
  1. EXJADE [Suspect]
     Indication: IRON OVERLOAD
     Dosage: 500 MG, DAILY
     Route: 048
  2. MULTIVITAMINS [Concomitant]
     Dosage: UNK UKN, UNK

REACTIONS (3)
  - Platelet count increased [Recovering/Resolving]
  - Hepatitis [Recovering/Resolving]
  - Anaemia [Recovering/Resolving]
